FAERS Safety Report 4333450-2 (Version None)
Quarter: 2004Q1

REPORT INFORMATION
  Report Type: 
  Country: None (occurrence: None)
  Receive Date: 20040329
  Receipt Date: 20040112
  Transmission Date: 20041129
  Serious: No
  Sender: FDA-Public Use
  Company Number: 04P-163-0246982-00

PATIENT
  Age: 76 Year
  Sex: Female
  Weight: 66.2252 kg

DRUGS (7)
  1. HUMIRA [Suspect]
     Indication: RHEUMATOID ARTHRITIS
     Dosage: 40 MG, 1 IN 2 WK, SUBCUTANEOUS; 40 MG, 1 IN 1 WK, SUBCUTANEOUS
     Route: 058
     Dates: start: 20031001, end: 20031101
  2. HUMIRA [Suspect]
     Indication: RHEUMATOID ARTHRITIS
     Dosage: 40 MG, 1 IN 2 WK, SUBCUTANEOUS; 40 MG, 1 IN 1 WK, SUBCUTANEOUS
     Route: 058
     Dates: start: 20031101
  3. FUROSEMIDE [Concomitant]
  4. MULTI-VITAMINS [Concomitant]
  5. CYANOCOBALAMIN [Concomitant]
  6. GLUCOSINE [Concomitant]
  7. ASPIRIN [Concomitant]

REACTIONS (9)
  - DRUG EFFECT DECREASED [None]
  - DRY SKIN [None]
  - HYPOAESTHESIA [None]
  - OEDEMA PERIPHERAL [None]
  - PAIN IN EXTREMITY [None]
  - PRURITUS [None]
  - RASH [None]
  - RASH MACULAR [None]
  - URTICARIA [None]
